FAERS Safety Report 5087678-7 (Version None)
Quarter: 2006Q3

REPORT INFORMATION
  Report Type: 
  Country: None (occurrence: None)
  Receive Date: 20060824
  Receipt Date: 20060821
  Transmission Date: 20061208
  Serious: Yes (Other)
  Sender: FDA-Public Use
  Company Number: JP-BRACCO-BRO-010408

PATIENT
  Sex: Female

DRUGS (1)
  1. IOPAMIRON [Suspect]
     Indication: THERAPEUTIC EMBOLISATION
     Route: 013

REACTIONS (2)
  - BRAIN SCAN ABNORMAL [None]
  - CONVULSION [None]
